FAERS Safety Report 7375281-5 (Version None)
Quarter: 2011Q1

REPORT INFORMATION
  Report Type: 
  Country: None (occurrence: None)
  Receive Date: 20110325
  Receipt Date: 20110310
  Transmission Date: 20110831
  Serious: No
  Sender: FDA-Public Use
  Company Number: JP-EISAI INC-E2090-01480-SPO-JP

PATIENT
  Sex: Male

DRUGS (10)
  1. MAGNESIUM OXIDE [Concomitant]
     Dosage: 660 MG DAILY
     Route: 048
  2. TAKEPRON [Concomitant]
  3. EXCEGRAN [Suspect]
     Dosage: 200 MG DAILY
     Route: 048
     Dates: start: 20110112, end: 20110130
  4. BLOPRESS [Concomitant]
     Dosage: 4 MG DAILY
  5. VALERIN [Concomitant]
     Dosage: 15 MG DAILY
  6. SELBEX [Concomitant]
     Dosage: 4 MG DAILY
  7. DANTRIUM [Concomitant]
     Dosage: 25 MG DAILY
     Route: 048
  8. OSPAIN [Concomitant]
     Dosage: 200 MG DAILY
     Route: 048
  9. VALPROATE SODIUM [Concomitant]
     Dosage: 600 MG DAILY
     Route: 048
  10. AMLODIPINE BESYLATE [Concomitant]
     Dosage: 1.25 MG DAILY
     Route: 048

REACTIONS (2)
  - STEVENS-JOHNSON SYNDROME [None]
  - WHITE BLOOD CELL COUNT DECREASED [None]
